FAERS Safety Report 14965637 (Version 3)
Quarter: 2018Q3

REPORT INFORMATION
  Report Type: Spontaneous
  Country: US (occurrence: US)
  Receive Date: 20180602
  Receipt Date: 20180913
  Transmission Date: 20181010
  Serious: No
  Sender: FDA-Public Use
  Company Number: US-TEVA-2018-US-899433

PATIENT
  Sex: Female

DRUGS (2)
  1. OXYTROL [Suspect]
     Active Substance: OXYBUTYNIN
     Indication: HYPERTONIC BLADDER
     Route: 062
  2. OXYTROL [Suspect]
     Active Substance: OXYBUTYNIN
     Dosage: 1 DF
     Route: 062

REACTIONS (4)
  - Drug ineffective [Unknown]
  - Application site erythema [Recovered/Resolved]
  - Skin discolouration [Unknown]
  - Product quality issue [Unknown]

NARRATIVE: CASE EVENT DATE: 2017
